FAERS Safety Report 7952246-3 (Version None)
Quarter: 2011Q4

REPORT INFORMATION
  Report Type: 
  Country: None (occurrence: None)
  Receive Date: 20111130
  Receipt Date: 20111130
  Transmission Date: 20120403
  Serious: Yes (Hospitalization)
  Sender: FDA-Public Use
  Company Number: None

PATIENT
  Age: 46 Year
  Sex: Male
  Weight: 129.5 kg

DRUGS (1)
  1. ETODOLAC [Suspect]
     Indication: PAIN
     Dosage: 400 MG BID PO
     Route: 048
     Dates: start: 20021030, end: 20111127

REACTIONS (1)
  - GASTRIC HAEMORRHAGE [None]
